FAERS Safety Report 9620085 (Version 2)
Quarter: 2013Q4

REPORT INFORMATION
  Report Type: Spontaneous
  Country: TR (occurrence: TR)
  Receive Date: 20131014
  Receipt Date: 20131024
  Transmission Date: 20140711
  Serious: Yes (Other)
  Sender: FDA-Public Use
  Company Number: TR-PFIZER INC-2013293434

PATIENT
  Age: 36 Year
  Sex: Female

DRUGS (4)
  1. NEURONTIN [Suspect]
     Indication: NEURALGIA
     Dosage: 600 MG, HALF TABLET TWICE DAILY
     Route: 048
  2. THIOCOLCHICOSIDE [Concomitant]
     Indication: NEURALGIA
     Dosage: UNK
  3. DEXKETOPROFEN [Concomitant]
     Indication: NEURALGIA
     Dosage: UNK MG, 2X/DAY
  4. CARBAMAZEPINE [Concomitant]

REACTIONS (1)
  - Epilepsy [Unknown]
